FAERS Safety Report 15424739 (Version 1)
Quarter: 2018Q3

REPORT INFORMATION
  Report Type: Spontaneous
  Country: IT (occurrence: IT)
  Receive Date: 20180925
  Receipt Date: 20180925
  Transmission Date: 20181010
  Serious: Yes (Hospitalization, Other)
  Sender: FDA-Public Use
  Company Number: IT-MYLANLABS-2018M1069478

PATIENT
  Age: 52 Year
  Sex: Male

DRUGS (5)
  1. CISPLATIN. [Suspect]
     Active Substance: CISPLATIN
     Indication: PENILE CANCER
     Dates: start: 201509
  2. CAPECITABINE. [Concomitant]
     Active Substance: CAPECITABINE
     Indication: PENILE CANCER
     Dosage: UNK
  3. DOCETAXEL. [Suspect]
     Active Substance: DOCETAXEL
     Indication: PENILE CANCER
     Dosage: 2 MONO WEEKLY CYCLES
     Dates: start: 201509
  4. DOCETAXEL. [Suspect]
     Active Substance: DOCETAXEL
     Dosage: UNK
  5. FLUOROURACIL. [Concomitant]
     Active Substance: FLUOROURACIL
     Indication: PENILE CANCER
     Dosage: UNK

REACTIONS (10)
  - Neurotoxicity [Unknown]
  - Anuria [Not Recovered/Not Resolved]
  - Haemolytic anaemia [Recovering/Resolving]
  - Blood bilirubin increased [Unknown]
  - Blood creatinine increased [Unknown]
  - Off label use [Unknown]
  - Thrombocytopenia [Recovered/Resolved]
  - Atypical haemolytic uraemic syndrome [Unknown]
  - Haemoglobinaemia [Recovered/Resolved]
  - Blood lactate dehydrogenase increased [Recovered/Resolved]

NARRATIVE: CASE EVENT DATE: 2016
